FAERS Safety Report 21936183 (Version 1)
Quarter: 2023Q1

REPORT INFORMATION
  Report Type: Spontaneous
  Country: US (occurrence: None)
  Receive Date: 20230131
  Receipt Date: 20230131
  Transmission Date: 20230417
  Serious: No
  Sender: FDA-Public Use
  Company Number: None

PATIENT
  Sex: Female

DRUGS (1)
  1. COSENTYX [Suspect]
     Active Substance: SECUKINUMAB
     Indication: Psoriasis
     Dosage: FREQUENCY : WEEKLY;? INJECT TWO SYRINGES SUBCUTANEOUSLY ONCE WEEKLY FOR 5 WEEKS (WEEKS 0,1,2,3, AND
     Route: 058
     Dates: start: 202301

REACTIONS (1)
  - Drug ineffective [None]
